FAERS Safety Report 7736679-6 (Version None)
Quarter: 2011Q3

REPORT INFORMATION
  Report Type: 
  Country: None (occurrence: None)
  Receive Date: 20110908
  Receipt Date: 20110905
  Transmission Date: 20111222
  Serious: Yes (Other)
  Sender: FDA-Public Use
  Company Number: SE-PFIZER INC-2011206858

PATIENT
  Age: 52 Year
  Sex: Male

DRUGS (3)
  1. LYRICA [Suspect]
     Dosage: 650 MG DAILY
     Dates: start: 20110101
  2. LYRICA [Suspect]
     Indication: ANXIETY
     Dosage: 300 MG DAILY
     Dates: start: 20110601
  3. LYRICA [Suspect]
     Dosage: 1200 MG
     Dates: start: 20110101

REACTIONS (2)
  - MALAISE [None]
  - DRUG DEPENDENCE [None]
